FAERS Safety Report 7232759-2 (Version None)
Quarter: 2011Q1

REPORT INFORMATION
  Report Type: 
  Country: None (occurrence: None)
  Receive Date: 20110110
  Receipt Date: 20101228
  Transmission Date: 20110831
  Serious: Yes (Hospitalization)
  Sender: FDA-Public Use
  Company Number: DE-1184401

PATIENT
  Age: 67 Year
  Sex: Female

DRUGS (3)
  1. LEVOTHYROXINE SODIUM [Concomitant]
  2. TRAVATAN [Suspect]
     Indication: GLAUCOMA
     Dosage: 1 GTT QD OUT OPHTHALMIC
     Route: 047
     Dates: start: 20090401
  3. VAGIFEM [Concomitant]

REACTIONS (2)
  - PALPITATIONS [None]
  - ATRIAL FIBRILLATION [None]
